FAERS Safety Report 6587946-3 (Version None)
Quarter: 2010Q1

REPORT INFORMATION
  Report Type: 
  Country: None (occurrence: None)
  Receive Date: 20100217
  Receipt Date: 20100217
  Transmission Date: 20100710
  Serious: Yes (Hospitalization)
  Sender: FDA-Public Use
  Company Number: None

PATIENT
  Age: 66 Year
  Weight: 68.2 kg

DRUGS (9)
  1. EVEROLIMUS (RAD001) 5MG NOVARTIS PHARMACEUTICALS [Suspect]
     Indication: METASTASES TO BONE
     Dosage: 5MG  DAILY ON DAYS 1-19 ORAL
     Route: 048
     Dates: start: 20100201, end: 20100215
  2. EVEROLIMUS (RAD001) 5MG NOVARTIS PHARMACEUTICALS [Suspect]
     Indication: NON-SMALL CELL LUNG CANCER STAGE IV
     Dosage: 5MG  DAILY ON DAYS 1-19 ORAL
     Route: 048
     Dates: start: 20100201, end: 20100215
  3. DOCETAXEL [Suspect]
     Indication: METASTASES TO PLEURA
     Dosage: 113 MG EVERY 3 WEEKS IV
     Route: 042
     Dates: start: 20100201, end: 20100201
  4. HYDROCHLOROTHIAZIDE [Concomitant]
  5. PERCOCET [Concomitant]
  6. OXYCODONE [Concomitant]
  7. DECADRON [Concomitant]
  8. CALCIUM CARBONATE [Concomitant]
  9. MVM [Concomitant]

REACTIONS (9)
  - ASTHENIA [None]
  - DYSPNOEA [None]
  - HYPOPHAGIA [None]
  - OXYGEN SATURATION DECREASED [None]
  - PAIN IN EXTREMITY [None]
  - PNEUMOTHORAX [None]
  - RESPIRATORY RATE INCREASED [None]
  - TACHYCARDIA [None]
  - VOMITING [None]
